FAERS Safety Report 8360800-2 (Version None)
Quarter: 2012Q2

REPORT INFORMATION
  Report Type: 
  Country: None (occurrence: None)
  Receive Date: 20120515
  Receipt Date: 20120122
  Transmission Date: 20120825
  Serious: Yes (Other)
  Sender: FDA-Public Use
  Company Number: ZA-JNJFOC-20120511862

PATIENT
  Sex: Female

DRUGS (2)
  1. NICORETTE [Suspect]
     Route: 062
  2. NICORETTE [Suspect]
     Indication: SMOKING CESSATION THERAPY
     Route: 062
     Dates: start: 20070101

REACTIONS (3)
  - OVERDOSE [None]
  - INCORRECT DRUG ADMINISTRATION DURATION [None]
  - NICOTINE DEPENDENCE [None]
